FAERS Safety Report 21354106 (Version 2)
Quarter: 2022Q3

REPORT INFORMATION
  Report Type: Spontaneous
  Country: US (occurrence: US)
  Receive Date: 20220920
  Receipt Date: 20220922
  Transmission Date: 20221026
  Serious: Yes (Other)
  Sender: FDA-Public Use
  Company Number: US-PFIZER INC-202201169980

PATIENT
  Age: 61 Year
  Sex: Female
  Weight: 58.97 kg

DRUGS (5)
  1. ESTRING [Suspect]
     Active Substance: ESTRADIOL
     Indication: Urinary tract infection
     Dosage: 2 MG (TO BE CHANGED EVERY 3 MONTHS)
     Route: 067
     Dates: start: 2019, end: 20220914
  2. ESTRING [Suspect]
     Active Substance: ESTRADIOL
     Indication: Vulvovaginal dryness
     Dosage: UNK
     Dates: start: 202208, end: 20220914
  3. ESTRING [Suspect]
     Active Substance: ESTRADIOL
     Indication: Fungal infection
  4. ESTRING [Suspect]
     Active Substance: ESTRADIOL
     Indication: Dyspareunia
  5. ESTRING [Suspect]
     Active Substance: ESTRADIOL
     Indication: Atrophic vulvovaginitis

REACTIONS (8)
  - Hernia repair [Unknown]
  - Colectomy [Unknown]
  - Mammoplasty [Unknown]
  - Candida infection [Unknown]
  - Vaginal infection [Not Recovered/Not Resolved]
  - Fungal infection [Recovered/Resolved]
  - Vulvovaginal pain [Unknown]
  - Discomfort [Unknown]

NARRATIVE: CASE EVENT DATE: 20200101
